FAERS Safety Report 4785850-4 (Version None)
Quarter: 2005Q3

REPORT INFORMATION
  Report Type: 
  Country: None (occurrence: None)
  Receive Date: 20050930
  Receipt Date: 20050920
  Transmission Date: 20060218
  Serious: Yes (Life-Threatening, Hospitalization)
  Sender: FDA-Public Use
  Company Number: DKLU1017161

PATIENT
  Age: 50 Year
  Sex: Male

DRUGS (2)
  1. RISPERIDONE [Suspect]
     Indication: PSYCHOTIC DISORDER
     Dosage: 6 MG MILLIGRAM (S) ORAL
     Route: 048
     Dates: start: 20050222, end: 20050428
  2. TIMONIL (CARBAMAZEPINE) [Concomitant]

REACTIONS (3)
  - INTENTIONAL SELF-INJURY [None]
  - SKIN LACERATION [None]
  - SUICIDE ATTEMPT [None]
